FAERS Safety Report 20749242 (Version 1)
Quarter: 2022Q2

REPORT INFORMATION
  Report Type: Spontaneous
  Country: US (occurrence: US)
  Receive Date: 20220426
  Receipt Date: 20220426
  Transmission Date: 20220721
  Serious: No
  Sender: FDA-Public Use
  Company Number: US-JNJFOC-20220436514

PATIENT
  Sex: Female

DRUGS (2)
  1. SPORANOX [Suspect]
     Active Substance: ITRACONAZOLE
     Indication: Arthropod infestation
     Route: 065
  2. SYNTHROID [Suspect]
     Active Substance: LEVOTHYROXINE SODIUM
     Indication: Product used for unknown indication
     Dosage: 0.88 MCG TO 0.50 MCG AROUND THE SAME TIME
     Route: 065

REACTIONS (3)
  - Blood testosterone increased [Unknown]
  - Sex hormone binding globulin increased [Unknown]
  - Liver disorder [Unknown]
